FAERS Safety Report 5772037-1 (Version None)
Quarter: 2008Q2

REPORT INFORMATION
  Report Type: 
  Country: None (occurrence: None)
  Receive Date: 20080613
  Receipt Date: 20080609
  Transmission Date: 20081010
  Serious: Yes (Hospitalization)
  Sender: FDA-Public Use
  Company Number: JP-ASTRAZENECA-2008AP03895

PATIENT
  Age: 24518 Day
  Sex: Male
  Weight: 69 kg

DRUGS (5)
  1. MARCAINE [Suspect]
     Indication: EPIDURAL ANAESTHESIA
     Route: 008
     Dates: start: 20080418, end: 20080507
  2. MARCAINE [Suspect]
     Route: 008
     Dates: start: 20080502, end: 20080507
  3. LOXONIN [Suspect]
     Indication: INTERVERTEBRAL DISC PROTRUSION
     Route: 048
     Dates: start: 20080416, end: 20080517
  4. VOLTAREN [Suspect]
     Indication: INTERVERTEBRAL DISC PROTRUSION
     Dosage: AS REQUIRED
     Route: 054
     Dates: start: 20080429, end: 20080517
  5. MUCOSTA [Concomitant]
     Dosage: DOSE UNKNOWN
     Route: 048
     Dates: end: 20080528

REACTIONS (1)
  - HEPATIC FUNCTION ABNORMAL [None]
